FAERS Safety Report 5784253-3 (Version None)
Quarter: 2008Q2

REPORT INFORMATION
  Report Type: 
  Country: None (occurrence: None)
  Receive Date: 20080624
  Receipt Date: 20070518
  Transmission Date: 20081010
  Serious: No
  Sender: FDA-Public Use
  Company Number: US-ASTRAZENECA-2007UW12406

PATIENT
  Sex: Male

DRUGS (5)
  1. PULMICORT-100 [Suspect]
     Route: 055
  2. XOPENEX [Concomitant]
  3. BENZONATATE [Concomitant]
  4. MUCINEX [Concomitant]
  5. CEPHALEXIN [Concomitant]

REACTIONS (1)
  - TONGUE DISCOLOURATION [None]
